FAERS Safety Report 7053996-6 (Version None)
Quarter: 2010Q4

REPORT INFORMATION
  Report Type: 
  Country: None (occurrence: None)
  Receive Date: 20101020
  Receipt Date: 20101013
  Transmission Date: 20110411
  Serious: Yes (Death)
  Sender: FDA-Public Use
  Company Number: JP-MERCK-1009USA03638

PATIENT
  Age: 67 Year
  Sex: Male
  Weight: 60 kg

DRUGS (10)
  1. DECADRON [Suspect]
     Indication: MULTIPLE MYELOMA
     Route: 065
  2. VELCADE [Suspect]
     Indication: MULTIPLE MYELOMA
     Route: 042
     Dates: start: 20070704, end: 20070704
  3. VELCADE [Suspect]
     Route: 042
     Dates: start: 20070801, end: 20070801
  4. FUNGUARD [Suspect]
     Indication: BRONCHOPULMONARY ASPERGILLOSIS
     Route: 042
     Dates: start: 20070801, end: 20070809
  5. FUNGUARD [Suspect]
     Route: 042
     Dates: start: 20070902, end: 20070910
  6. VFEND [Suspect]
     Indication: BRONCHOPULMONARY ASPERGILLOSIS
     Route: 042
     Dates: start: 20070811, end: 20070910
  7. DECADRON PHOSPHATE [Suspect]
     Indication: MULTIPLE MYELOMA
     Route: 042
     Dates: start: 20070801, end: 20070802
  8. DECADRON PHOSPHATE [Suspect]
     Route: 042
     Dates: start: 20070621, end: 20070601
  9. DECADRON PHOSPHATE [Suspect]
     Route: 042
     Dates: start: 20070704, end: 20070705
  10. MEROPEN [Concomitant]
     Indication: INFECTION
     Route: 042
     Dates: start: 20070621, end: 20070627

REACTIONS (1)
  - ZYGOMYCOSIS [None]
